FAERS Safety Report 20155974 (Version 2)
Quarter: 2021Q4

REPORT INFORMATION
  Report Type: Spontaneous
  Country: IT (occurrence: IT)
  Receive Date: 20211207
  Receipt Date: 20211215
  Transmission Date: 20220303
  Serious: Yes (Other)
  Sender: FDA-Public Use
  Company Number: IT-AMGEN-ITASP2021159409

PATIENT
  Age: 8 Year
  Sex: Male

DRUGS (1)
  1. ADALIMUMAB [Suspect]
     Active Substance: ADALIMUMAB
     Indication: Crohn^s disease
     Dosage: UNK
     Route: 065

REACTIONS (8)
  - Crohn^s disease [Recovered/Resolved]
  - Iron deficiency anaemia [Recovered/Resolved]
  - Anal fistula [Recovered/Resolved]
  - Therapy non-responder [Unknown]
  - Therapeutic product effect decreased [Unknown]
  - Anaemia [Unknown]
  - Nutritional condition abnormal [Recovered/Resolved]
  - Drug tolerance [Unknown]
